FAERS Safety Report 4826930-4 (Version None)
Quarter: 2005Q4

REPORT INFORMATION
  Report Type: 
  Country: None (occurrence: None)
  Receive Date: 20051014
  Receipt Date: 20050722
  Transmission Date: 20060501
  Serious: No
  Sender: FDA-Public Use
  Company Number: 2005SP002041

PATIENT
  Age: 68 Year
  Sex: Male
  Weight: 104.3273 kg

DRUGS (3)
  1. LUNESTA [Suspect]
     Dosage: 3MG; HS ; ORAL
     Route: 048
     Dates: start: 20050101
  2. LORAZEPAM [Concomitant]
  3. AMBIEN [Concomitant]

REACTIONS (2)
  - DRUG INEFFECTIVE [None]
  - INSOMNIA [None]
